FAERS Safety Report 18534934 (Version 1)
Quarter: 2020Q4

REPORT INFORMATION
  Report Type: Spontaneous
  Country: US (occurrence: US)
  Receive Date: 20201123
  Receipt Date: 20201123
  Transmission Date: 20210114
  Serious: Yes (Hospitalization, Other)
  Sender: FDA-Public Use
  Company Number: US-PURDUE-USA-2020-0164161

PATIENT
  Sex: Male

DRUGS (8)
  1. HYDROCODONE BITARTRATE AND ACETAMINOPHEN [Suspect]
     Active Substance: ACETAMINOPHEN\HYDROCODONE BITARTRATE
     Indication: INTERVERTEBRAL DISC DEGENERATION
     Dosage: UNK
     Route: 048
     Dates: start: 2004
  2. MORPHINE SULFATE (SIMILAR TO NDA 19-516) [Suspect]
     Active Substance: MORPHINE SULFATE
     Indication: INTERVERTEBRAL DISC DEGENERATION
     Dosage: UNK
     Route: 048
     Dates: start: 2004
  3. HYDROCODONE BITARTRATE AND ACETAMINOPHEN [Suspect]
     Active Substance: ACETAMINOPHEN\HYDROCODONE BITARTRATE
     Indication: PAIN
  4. MORPHINE SULFATE (SIMILAR TO NDA 19-516) [Suspect]
     Active Substance: MORPHINE SULFATE
     Indication: PAIN
  5. MORPHINE SULFATE EXTENDED-RELEASE TABLETS (RHODES 74-769, 74-862) [Suspect]
     Active Substance: MORPHINE SULFATE
     Indication: INTERVERTEBRAL DISC DEGENERATION
     Dosage: UNK
     Route: 048
     Dates: start: 2004
  6. HEROIN [Suspect]
     Active Substance: DIAMORPHINE
     Indication: INTERVERTEBRAL DISC DEGENERATION
     Dosage: UNK
     Route: 065
     Dates: start: 2004
  7. HEROIN [Suspect]
     Active Substance: DIAMORPHINE
     Indication: PAIN
  8. MORPHINE SULFATE EXTENDED-RELEASE TABLETS (RHODES 74-769, 74-862) [Suspect]
     Active Substance: MORPHINE SULFATE
     Indication: PAIN

REACTIONS (7)
  - Somnolence [Unknown]
  - Back pain [Unknown]
  - Anxiety [Unknown]
  - Depression [Unknown]
  - Abscess limb [Unknown]
  - Panic attack [Unknown]
  - Drug dependence [Unknown]
